FAERS Safety Report 8101677-X (Version None)
Quarter: 2012Q1

REPORT INFORMATION
  Report Type: 
  Country: None (occurrence: None)
  Receive Date: 20120129
  Receipt Date: 20111012
  Transmission Date: 20120608
  Serious: No
  Sender: FDA-Public Use
  Company Number: US-ABBOTT-11P-163-0863492-00

PATIENT
  Age: 51 Year
  Sex: Female

DRUGS (7)
  1. HUMIRA [Suspect]
     Indication: CROHN'S DISEASE
     Dates: start: 20110822
  2. PROBIOTICS [Concomitant]
     Indication: PROPHYLAXIS
  3. PENTASA [Concomitant]
     Indication: CROHN'S DISEASE
  4. PROBIOTICS [Concomitant]
     Indication: MEDICAL DIET
     Dosage: DAILY
  5. MULTIVITAMIN [Concomitant]
     Indication: VITAMIN SUPPLEMENTATION
     Dosage: DAILY
  6. LANSOPRAZOLE [Concomitant]
     Indication: GASTROOESOPHAGEAL REFLUX DISEASE
     Dosage: 1 TAB IN MORNING, 1 TAB IN EVENING
  7. BENTYL [Concomitant]
     Indication: ABDOMINAL PAIN UPPER
     Dosage: AT BEDTIME AS NEEDED

REACTIONS (2)
  - FATIGUE [None]
  - DECREASED APPETITE [None]
